FAERS Safety Report 18469426 (Version 1)
Quarter: 2020Q4

REPORT INFORMATION
  Report Type: Spontaneous
  Country: US (occurrence: US)
  Receive Date: 20201105
  Receipt Date: 20201105
  Transmission Date: 20210114
  Serious: No
  Sender: FDA-Public Use
  Company Number: US-PFIZER INC-2018454200

PATIENT
  Age: 11 Year
  Sex: Female
  Weight: 34 kg

DRUGS (1)
  1. GENOTROPIN [Suspect]
     Active Substance: SOMATROPIN
     Indication: GROWTH HORMONE DEFICIENCY
     Dosage: 1.4 MG, 1X/DAY (EVERY NIGHT)
     Dates: start: 20160429

REACTIONS (5)
  - Product dose omission issue [Unknown]
  - Joint noise [Unknown]
  - Device breakage [Unknown]
  - Drug ineffective [Unknown]
  - Bone pain [Unknown]
